FAERS Safety Report 16620522 (Version 1)
Quarter: 2019Q3

REPORT INFORMATION
  Report Type: Spontaneous
  Country: JP (occurrence: JP)
  Receive Date: 20190723
  Receipt Date: 20190723
  Transmission Date: 20191004
  Serious: Yes (Hospitalization, Other)
  Sender: FDA-Public Use
  Company Number: JP-PFIZER INC-2019307954

PATIENT
  Age: 78 Year
  Sex: Male

DRUGS (7)
  1. ZOLPIDEM TARTRATE. [Concomitant]
     Active Substance: ZOLPIDEM TARTRATE
     Dosage: 5 MG, DAILY
  2. INSULIN DEGLUDEC [Concomitant]
     Active Substance: INSULIN DEGLUDEC
     Dosage: 18 UNITS/DAY, BEFORE SLEEP
  3. INSULIN ASPART [Concomitant]
     Active Substance: INSULIN ASPART
     Dosage: DAILY (8 UNITS IN MORNING, 6 UNITS IN AFTERNOON, 14 UNITS IN EVENING)
  4. METHOTREXATE SODIUM. [Suspect]
     Active Substance: METHOTREXATE SODIUM
     Indication: RHEUMATOID ARTHRITIS
     Dosage: 8 MG, WEEKLY
  5. METHOTREXATE SODIUM. [Suspect]
     Active Substance: METHOTREXATE SODIUM
     Dosage: UNK, DAILY (1-3 TABLETS)
  6. LANSOPRAZOLE. [Concomitant]
     Active Substance: LANSOPRAZOLE
     Dosage: 30 MG, DAILY
  7. ETIZOLAM [Concomitant]
     Active Substance: ETIZOLAM
     Dosage: 0.5 MG, DAILY

REACTIONS (11)
  - Hepatic function abnormal [Recovered/Resolved]
  - Overdose [Unknown]
  - Gastroenteritis [Unknown]
  - Treatment noncompliance [Unknown]
  - Myelodysplastic syndrome [Unknown]
  - Folate deficiency [Unknown]
  - Mouth ulceration [Unknown]
  - Diarrhoea [Recovered/Resolved]
  - C-reactive protein increased [Recovered/Resolved]
  - Cytopenia [Recovered/Resolved]
  - Mouth haemorrhage [Unknown]
